FAERS Safety Report 16143750 (Version 2)
Quarter: 2019Q2

REPORT INFORMATION
  Report Type: Spontaneous
  Country: US (occurrence: US)
  Receive Date: 20190401
  Receipt Date: 20190429
  Transmission Date: 20190711
  Serious: No
  Sender: FDA-Public Use
  Company Number: US-PFIZER INC-2019102597

PATIENT
  Age: 12 Year
  Sex: Male
  Weight: 38.55 kg

DRUGS (2)
  1. GENOTROPIN [Suspect]
     Active Substance: SOMATROPIN
     Indication: GROWTH HORMONE DEFICIENCY
     Dosage: 1.4 MG, 1X/DAY (EVERY NIGHT)
     Route: 058
     Dates: start: 20190314
  2. CONCERTA [Concomitant]
     Active Substance: METHYLPHENIDATE HYDROCHLORIDE
     Indication: ATTENTION DEFICIT/HYPERACTIVITY DISORDER
     Dosage: 54 MG, 1X/DAY (EVERY MORNING)
     Route: 048
     Dates: start: 201808

REACTIONS (2)
  - Poor quality device used [Unknown]
  - Wrong technique in device usage process [Unknown]
